FAERS Safety Report 11784561 (Version 2)
Quarter: 2015Q4

REPORT INFORMATION
  Report Type: Report from Study
  Country: US (occurrence: US)
  Receive Date: 20151130
  Receipt Date: 20151211
  Transmission Date: 20160305
  Serious: No
  Sender: FDA-Public Use
  Company Number: US-AMGEN-USASL2015124637

PATIENT
  Age: 49 Year
  Sex: Female

DRUGS (1)
  1. ENBREL [Suspect]
     Active Substance: ETANERCEPT
     Indication: PALINDROMIC RHEUMATISM
     Dosage: 50 MG, QWK
     Route: 065
     Dates: start: 20150720

REACTIONS (10)
  - Injection site pruritus [Recovered/Resolved]
  - Off label use [Unknown]
  - Injection site reaction [Recovered/Resolved]
  - Discomfort [Unknown]
  - Injection site haemorrhage [Recovered/Resolved]
  - Condition aggravated [Recovered/Resolved]
  - Injection site warmth [Recovered/Resolved]
  - Injection site erythema [Recovered/Resolved]
  - Device issue [Unknown]
  - Insomnia [Unknown]
